FAERS Safety Report 9551623 (Version 1)
Quarter: 2013Q3

REPORT INFORMATION
  Report Type: Spontaneous
  Country: US (occurrence: None)
  Receive Date: 20130923
  Receipt Date: 20130923
  Transmission Date: 20140515
  Serious: No
  Sender: FDA-Public Use
  Company Number: None

PATIENT
  Age: 47 Year
  Sex: Female

DRUGS (1)
  1. SIMPONI [Suspect]
     Dosage: INJECT 50 MG( 0.5 ML) SUBCUTANEOUSLY ONCE MONTHLY
     Route: 058
     Dates: start: 20120925

REACTIONS (6)
  - Chromaturia [None]
  - Headache [None]
  - Chills [None]
  - Pyrexia [None]
  - Muscle twitching [None]
  - Sleep disorder [None]
